FAERS Safety Report 15181143 (Version 1)
Quarter: 2018Q3

REPORT INFORMATION
  Report Type: Spontaneous
  Country: US (occurrence: US)
  Receive Date: 20180723
  Receipt Date: 20180723
  Transmission Date: 20181010
  Serious: Yes (Other)
  Sender: FDA-Public Use
  Company Number: US-SAKK-2018SA193159AA

PATIENT
  Sex: Female

DRUGS (4)
  1. CLONAZEPAM AUDEN [Concomitant]
     Active Substance: CLONAZEPAM
  2. MULTAQ [Concomitant]
     Active Substance: DRONEDARONE
  3. GUAIFENESIN/PSEUDOEPHEDRINE HYDROCHLORIDE [Concomitant]
  4. ALLEGRA [Suspect]
     Active Substance: FEXOFENADINE HYDROCHLORIDE
     Indication: PRODUCT USED FOR UNKNOWN INDICATION
     Dosage: 400 MG, BID

REACTIONS (4)
  - Atrial fibrillation [Unknown]
  - Abdominal discomfort [Recovered/Resolved]
  - Nausea [Recovered/Resolved]
  - Stupor [Unknown]

NARRATIVE: CASE EVENT DATE: 201805
